FAERS Safety Report 7973476-0 (Version None)
Quarter: 2011Q4

REPORT INFORMATION
  Report Type: 
  Country: None (occurrence: None)
  Receive Date: 20111209
  Receipt Date: 20111125
  Transmission Date: 20120403
  Serious: Yes (Life-Threatening)
  Sender: FDA-Public Use
  Company Number: 1000022516

PATIENT
  Age: 44 Year
  Sex: Male

DRUGS (9)
  1. BACLOFEN [Suspect]
     Indication: MUSCLE SPASMS
     Dosage: 40 MG (10 MG,4 IN 1 D),ORAL
     Route: 048
     Dates: start: 20110201, end: 20110623
  2. BACLOFEN [Suspect]
     Indication: MUSCLE SPASMS
     Dosage: 25 MG (25 MG,1 IN 1 D),ORAL
     Route: 048
     Dates: start: 20110627, end: 20110628
  3. ESCITALOPRAM OXALATE [Suspect]
     Indication: DEPRESSION
     Dosage: 5 MG (5 MG,1 IN 1 D),ORAL
     Route: 048
     Dates: start: 20110615, end: 20110616
  4. IMOVANE (ZOPICLONE) (ZOPICLONE) [Concomitant]
  5. ALOPAM (OXAZEPAM) (OXAZEPAM) [Concomitant]
  6. ESCITALOPRAM OXALATE [Suspect]
     Indication: DEPRESSION
     Dosage: 10 MG (10 MG,1 IN 1 D),ORAL
     Route: 048
     Dates: start: 20110617, end: 20110622
  7. HIPREX (METHENAMINE HIPPURATE) (METHENAMINE HIPPURATE) [Concomitant]
  8. MAREVAN (WARFARIN SODIUM) (WARFARIN SODIUM) [Concomitant]
  9. BIO-C-VITAMIN (ASCORBIC ACID) (ASCORBIC ACID) [Concomitant]

REACTIONS (13)
  - EYE MOVEMENT DISORDER [None]
  - TACHYCARDIA [None]
  - SUICIDE ATTEMPT [None]
  - BLOOD CREATINE PHOSPHOKINASE INCREASED [None]
  - HYPOVENTILATION [None]
  - HYPOREFLEXIA [None]
  - SEROTONIN SYNDROME [None]
  - CONFUSIONAL STATE [None]
  - AGGRESSION [None]
  - MUSCLE RIGIDITY [None]
  - STUPOR [None]
  - ASPHYXIA [None]
  - MYDRIASIS [None]
